FAERS Safety Report 5076567-X (Version None)
Quarter: 2006Q3

REPORT INFORMATION
  Report Type: 
  Country: None (occurrence: None)
  Receive Date: 20060810
  Receipt Date: 20060310
  Transmission Date: 20061208
  Serious: Yes (Hospitalization, Other)
  Sender: FDA-Public Use
  Company Number: PHEH2006US03263

PATIENT
  Age: 63 Year
  Sex: Male

DRUGS (17)
  1. MYCOPHENOLATE MOFETIL [Suspect]
     Indication: RENAL TRANSPLANT
     Dosage: 2000 MG, QD
     Route: 048
     Dates: start: 20060110
  2. PREDNISONE [Concomitant]
     Dosage: UNK, UNK
     Dates: start: 20060121
  3. BACTRIM [Concomitant]
  4. DIFLUCAN [Concomitant]
  5. COLACE [Concomitant]
  6. LIPITOR [Concomitant]
  7. RENAGEL [Concomitant]
  8. IMDUR [Concomitant]
  9. METOPROLOL TARTRATE [Concomitant]
  10. TYLENOL W/ CODEINE NO. 3 [Concomitant]
  11. PROSOM [Concomitant]
  12. NORVASC [Concomitant]
  13. DARBEPOETIN ALFA [Concomitant]
  14. NPH INSULIN [Concomitant]
  15. PLAVIX [Concomitant]
  16. ASPIRIN [Concomitant]
  17. CYCLOSPORINE [Suspect]
     Indication: RENAL TRANSPLANT
     Dosage: 250 MG, QD
     Route: 048
     Dates: start: 20060201

REACTIONS (4)
  - ANAEMIA [None]
  - HAEMOGLOBIN DECREASED [None]
  - LARGE INTESTINAL ULCER [None]
  - OCCULT BLOOD POSITIVE [None]
